FAERS Safety Report 6837883-1 (Version None)
Quarter: 2010Q3

REPORT INFORMATION
  Report Type: 
  Country: None (occurrence: None)
  Receive Date: 20100713
  Receipt Date: 20070527
  Transmission Date: 20110219
  Serious: No
  Sender: FDA-Public Use
  Company Number: US-PFIZER INC-2007042919

PATIENT
  Sex: Female
  Weight: 95.4 kg

DRUGS (3)
  1. CHANTIX [Suspect]
     Indication: SMOKING CESSATION THERAPY
     Dates: start: 20070423
  2. LISINOPRIL [Concomitant]
  3. CRESTOR [Concomitant]

REACTIONS (1)
  - ABNORMAL DREAMS [None]
